FAERS Safety Report 6817497-X (Version None)
Quarter: 2010Q3

REPORT INFORMATION
  Report Type: 
  Country: None (occurrence: None)
  Receive Date: 20100706
  Receipt Date: 20100705
  Transmission Date: 20110219
  Serious: Yes (Other)
  Sender: FDA-Public Use
  Company Number: B0659738A

PATIENT
  Age: 84 Year
  Sex: Male

DRUGS (13)
  1. ARIXTRA [Suspect]
     Indication: PRODUCT USED FOR UNKNOWN INDICATION
     Route: 058
     Dates: start: 20100423, end: 20100428
  2. ROCEPHIN [Suspect]
     Indication: PROSTATITIS
     Dosage: 1G PER DAY
     Route: 048
     Dates: start: 20100426, end: 20100426
  3. NEXIUM [Suspect]
     Indication: PRODUCT USED FOR UNKNOWN INDICATION
     Route: 065
     Dates: end: 20100428
  4. CORDARONE [Concomitant]
     Route: 065
  5. NORSET [Concomitant]
     Dosage: 15MG UNKNOWN
     Route: 048
  6. LEVOTHYROXINE SODIUM [Concomitant]
     Route: 065
  7. RILMENIDINE [Concomitant]
     Route: 065
  8. TAREG [Concomitant]
     Dosage: 80MG UNKNOWN
     Route: 048
  9. MODOPAR [Concomitant]
     Route: 048
  10. BROMAZEPAM [Concomitant]
     Route: 065
  11. ZOPICLONE [Concomitant]
     Route: 065
  12. BACTRIM [Concomitant]
     Route: 065
  13. QUINOLONE [Concomitant]
     Route: 065
     Dates: start: 20100428

REACTIONS (2)
  - NEUTROPENIA [None]
  - THROMBOCYTOPENIA [None]
